FAERS Safety Report 8448502-5 (Version None)
Quarter: 2012Q2

REPORT INFORMATION
  Report Type: 
  Country: None (occurrence: None)
  Receive Date: 20120612
  Receipt Date: 20120528
  Transmission Date: 20120825
  Serious: Yes (Life-Threatening)
  Sender: FDA-Public Use
  Company Number: FK201201562

PATIENT
  Age: 60 Year
  Sex: Male

DRUGS (6)
  1. OXALIPLATIN [Suspect]
     Indication: COLON CANCER
     Dosage: 225 MG, INTRAVENOUS (NOT OTHERWISE SPECIFIED)
     Route: 042
     Dates: start: 20111106, end: 20120518
  2. XELODA [Concomitant]
  3. ALOXI [Concomitant]
  4. RANIDIL (RANITIDINE HYDROCHLORIDE) [Concomitant]
  5. AVASTIN (SIMVASTATIN) [Concomitant]
  6. DESAMETASONE FOSFATO (DEXAMETHASONE PHOSPHATE) [Concomitant]

REACTIONS (9)
  - HEART RATE INCREASED [None]
  - BRADYCARDIA [None]
  - WHEEZING [None]
  - FLUSHING [None]
  - HYPOTENSION [None]
  - DYSPHONIA [None]
  - PARAESTHESIA ORAL [None]
  - DYSPNOEA [None]
  - MALAISE [None]
